FAERS Safety Report 16749352 (Version 1)
Quarter: 2019Q3

REPORT INFORMATION
  Report Type: Report from Study
  Country: CA (occurrence: CA)
  Receive Date: 20190828
  Receipt Date: 20190828
  Transmission Date: 20191005
  Serious: Yes (Hospitalization, Other)
  Sender: FDA-Public Use
  Company Number: CA-BRISTOL-MYERS SQUIBB COMPANY-BMS-2019-082701

PATIENT
  Age: 74 Year
  Sex: Male

DRUGS (16)
  1. PRAVASTATIN. [Concomitant]
     Active Substance: PRAVASTATIN
     Indication: PRODUCT USED FOR UNKNOWN INDICATION
     Dosage: 20 MILLIGRAM, QD
     Route: 048
  2. APIXABAN [Suspect]
     Active Substance: APIXABAN
     Indication: PRODUCT USED FOR UNKNOWN INDICATION
     Dosage: 5 MILLIGRAM
     Route: 065
  3. D-TABS [Concomitant]
     Active Substance: CHOLECALCIFEROL
     Indication: PRODUCT USED FOR UNKNOWN INDICATION
     Dosage: 10000 INTERNATIONAL UNIT, QWK
     Route: 048
  4. XARELTO [Concomitant]
     Active Substance: RIVAROXABAN
     Indication: PRODUCT USED FOR UNKNOWN INDICATION
     Dosage: 20 MILLIGRAM, QD
     Route: 048
  5. SANDOSTATIN [Suspect]
     Active Substance: OCTREOTIDE ACETATE
     Indication: PRODUCT USED FOR UNKNOWN INDICATION
     Dosage: 450 MICROGRAM, DAILY
     Route: 058
  6. SANDOSTATIN [Suspect]
     Active Substance: OCTREOTIDE ACETATE
     Indication: PRODUCT USED FOR UNKNOWN INDICATION
     Dosage: UNK, DAILY
     Route: 058
  7. LEVOFLOXACIN. [Concomitant]
     Active Substance: LEVOFLOXACIN
     Indication: PROPHYLAXIS
     Dosage: 500 MILLIGRAM, QD
     Route: 065
  8. MAR ATENOLOL [Concomitant]
     Indication: PRODUCT USED FOR UNKNOWN INDICATION
     Dosage: 25 MILLIGRAM, QD
     Route: 048
  9. TAMSULOSIN CR [Concomitant]
     Active Substance: TAMSULOSIN
     Indication: PRODUCT USED FOR UNKNOWN INDICATION
     Dosage: 0.4 MILLIGRAM, BID
     Route: 048
  10. APIXABAN [Suspect]
     Active Substance: APIXABAN
     Indication: PRODUCT USED FOR UNKNOWN INDICATION
     Dosage: 2.5 MILLIGRAM
     Route: 065
  11. ATENOLOL. [Concomitant]
     Active Substance: ATENOLOL
     Indication: PRODUCT USED FOR UNKNOWN INDICATION
     Dosage: 25 MILLIGRAM, QD
     Route: 048
  12. SANDOSTATIN [Suspect]
     Active Substance: OCTREOTIDE ACETATE
     Indication: PRODUCT USED FOR UNKNOWN INDICATION
     Dosage: 5.0 MICROGRAM
     Route: 030
  13. APO-OFLOXACIN [Concomitant]
     Indication: PRODUCT USED FOR UNKNOWN INDICATION
     Dosage: 0.3 PERCENT, QID
     Route: 065
  14. FENTANYL. [Concomitant]
     Active Substance: FENTANYL
     Indication: PRODUCT USED FOR UNKNOWN INDICATION
     Dosage: 25 DOSAGE FORM
     Route: 065
  15. SANDOSTATIN [Suspect]
     Active Substance: OCTREOTIDE ACETATE
     Indication: CARCINOID TUMOUR PULMONARY
     Dosage: 30 MILLIGRAM, QWK
     Route: 030
  16. SANDOSTATIN [Suspect]
     Active Substance: OCTREOTIDE ACETATE
     Indication: CARCINOID TUMOUR PULMONARY
     Dosage: 5 MICROGRAM, DAILY
     Route: 058

REACTIONS (37)
  - Bone cancer [Recovered/Resolved]
  - Chills [Recovered/Resolved]
  - Injection site reaction [Recovered/Resolved]
  - Metastasis [Recovered/Resolved]
  - Gait disturbance [Recovered/Resolved]
  - Needle issue [Recovered/Resolved]
  - Oedema peripheral [Recovered/Resolved]
  - Peripheral swelling [Recovered/Resolved]
  - Blood pressure systolic increased [Recovered/Resolved]
  - Cervical radiculopathy [Recovered/Resolved]
  - Hypokinesia [Recovered/Resolved]
  - Injection site nerve damage [Recovered/Resolved]
  - Mouth haemorrhage [Recovered/Resolved]
  - Bone pain [Recovered/Resolved]
  - Bradycardia [Recovered/Resolved]
  - Cough [Recovered/Resolved]
  - Headache [Recovered/Resolved]
  - Injection site inflammation [Recovered/Resolved]
  - Nasal congestion [Recovered/Resolved]
  - Tremor [Recovered/Resolved]
  - Intentional product use issue [Unknown]
  - Incorrect route of product administration [Unknown]
  - Fatigue [Recovered/Resolved]
  - Injection site erythema [Recovered/Resolved]
  - Injection site pain [Recovered/Resolved]
  - Rash [Recovered/Resolved]
  - Dysuria [Recovered/Resolved]
  - Injection site mass [Recovered/Resolved]
  - Internal haemorrhage [Recovered/Resolved]
  - Oropharyngeal pain [Recovered/Resolved]
  - Epistaxis [Recovered/Resolved]
  - Erythema [Recovered/Resolved]
  - Haemorrhage [Recovered/Resolved]
  - Pain [Recovered/Resolved]
  - Incorrect dose administered [Unknown]
  - Dizziness [Recovered/Resolved]
  - Sinus disorder [Recovered/Resolved]
